FAERS Safety Report 11197235 (Version 1)
Quarter: 2015Q2

REPORT INFORMATION
  Report Type: Spontaneous
  Country: US (occurrence: US)
  Receive Date: 20150617
  Receipt Date: 20150617
  Transmission Date: 20150821
  Serious: No
  Sender: FDA-Public Use
  Company Number: US-SA-2015SA000305

PATIENT
  Age: 28 Year
  Sex: Female
  Weight: 53.2 kg

DRUGS (13)
  1. VITAMIN D [Concomitant]
     Active Substance: CHOLECALCIFEROL
     Dosage: DOSE:5000 UNIT(S)
  2. RISPERDAL [Concomitant]
     Active Substance: RISPERIDONE
  3. PREVACID [Concomitant]
     Active Substance: LANSOPRAZOLE
  4. ZITHROMAX [Concomitant]
     Active Substance: AZITHROMYCIN DIHYDRATE
  5. CEREZYME [Suspect]
     Active Substance: IMIGLUCERASE
     Dosage: DOSE:3200 UNIT(S)
     Route: 041
     Dates: start: 20041028
  6. PENICILLIN V POTASSIUM. [Concomitant]
     Active Substance: PENICILLIN V POTASSIUM
  7. EPIPEN [Concomitant]
     Active Substance: EPINEPHRINE
     Dosage: AUTOINJECTOR.
  8. ZOLOFT [Concomitant]
     Active Substance: SERTRALINE HYDROCHLORIDE
  9. PRILOSEC [Concomitant]
     Active Substance: OMEPRAZOLE MAGNESIUM
  10. DIPHENHYDRAMINE HYDROCHLORIDE. [Concomitant]
     Active Substance: DIPHENHYDRAMINE HYDROCHLORIDE
  11. NORMAL SALINE [Concomitant]
     Active Substance: SODIUM CHLORIDE
  12. WATER FOR INJECTION [Concomitant]
     Active Substance: WATER
  13. SOLU-CORTEF [Concomitant]
     Active Substance: HYDROCORTISONE SODIUM SUCCINATE
     Dosage: MIX-O-V

REACTIONS (1)
  - Abdominal pain lower [Recovered/Resolved]

NARRATIVE: CASE EVENT DATE: 20141204
